FAERS Safety Report 9887719 (Version 2)
Quarter: 2014Q1

REPORT INFORMATION
  Report Type: Spontaneous
  Country: PL (occurrence: PL)
  Receive Date: 20140211
  Receipt Date: 20140219
  Transmission Date: 20141002
  Serious: Yes (Other)
  Sender: FDA-Public Use
  Company Number: PL-AMGEN-POLSP2014009236

PATIENT
  Age: 14 Year
  Sex: Male
  Weight: 57.9 kg

DRUGS (5)
  1. ENBREL [Suspect]
     Indication: JUVENILE IDIOPATHIC ARTHRITIS
     Dosage: 25 MG, 2 TIMES/WK
     Route: 058
     Dates: start: 20110412, end: 20140109
  2. ENBREL [Suspect]
     Dosage: UNK
     Route: 065
  3. METHOTREXAT                        /00113801/ [Concomitant]
     Dosage: 17.5 MG, WEEKLY
     Dates: start: 2010, end: 20130326
  4. METHOTREXAT                        /00113801/ [Concomitant]
     Dosage: 22.5 MG, WEEKLY
  5. CYCLOSPORIN [Concomitant]
     Dosage: 75 MG, 2X/DAY
     Dates: start: 2010, end: 20140109

REACTIONS (1)
  - Pulmonary tuberculosis [Not Recovered/Not Resolved]
